FAERS Safety Report 8345523-8 (Version None)
Quarter: 2012Q2

REPORT INFORMATION
  Report Type: 
  Country: None (occurrence: None)
  Receive Date: 20120508
  Receipt Date: 20120504
  Transmission Date: 20120825
  Serious: Yes (Hospitalization, Other)
  Sender: FDA-Public Use
  Company Number: FR-ABBOTT-11P-056-0701877-00

PATIENT
  Sex: Female

DRUGS (16)
  1. ABATACEPT [Concomitant]
     Indication: PRODUCT USED FOR UNKNOWN INDICATION
  2. DICLOFENAC [Suspect]
  3. METHOTREXATE [Suspect]
     Route: 058
     Dates: end: 20101208
  4. PREDNISONE TAB [Concomitant]
     Indication: PRODUCT USED FOR UNKNOWN INDICATION
  5. OMEPRAZOLE [Concomitant]
     Indication: PRODUCT USED FOR UNKNOWN INDICATION
  6. DICLOFENAC [Suspect]
     Indication: RHEUMATOID ARTHRITIS
     Dates: end: 20101208
  7. METHOTREXATE [Suspect]
     Indication: RHEUMATOID ARTHRITIS
     Dates: start: 19910101, end: 19980401
  8. METHOTREXATE [Suspect]
     Dates: end: 20090301
  9. HUMIRA [Suspect]
     Indication: RHEUMATOID ARTHRITIS
     Route: 058
     Dates: start: 20101001, end: 20101208
  10. DICLOFENAC [Suspect]
  11. TRAMADOL HCL [Concomitant]
     Indication: PRODUCT USED FOR UNKNOWN INDICATION
  12. NONSTEROIDAL ANTI-INFLAMMATORY [Concomitant]
     Indication: RHEUMATOID ARTHRITIS
  13. ACETAMINOPHEN [Concomitant]
     Indication: RHEUMATOID ARTHRITIS
  14. ACETAMINOPHEN W/ PROPOXYPHENE HCL [Suspect]
     Indication: PRODUCT USED FOR UNKNOWN INDICATION
     Dates: start: 20020101, end: 20101208
  15. METHOTREXATE [Concomitant]
     Indication: PRODUCT USED FOR UNKNOWN INDICATION
     Dosage: PER WEEK
  16. PERINDOPRIL ERBUMINE [Concomitant]
     Indication: HYPERTENSION

REACTIONS (2)
  - AUTOIMMUNE HEPATITIS [None]
  - CYTOLYTIC HEPATITIS [None]
